FAERS Safety Report 19134881 (Version 2)
Quarter: 2021Q2

REPORT INFORMATION
  Report Type: Spontaneous
  Country: LB (occurrence: LB)
  Receive Date: 20210414
  Receipt Date: 20210423
  Transmission Date: 20210717
  Serious: Yes (Other)
  Sender: FDA-Public Use
  Company Number: LB-ALVOGEN-2021-ALVOGEN-116859

PATIENT
  Age: 87 Year
  Sex: Female
  Weight: 82 kg

DRUGS (5)
  1. LISINOPRIL. [Suspect]
     Active Substance: LISINOPRIL
     Indication: HYPERTENSION
     Route: 048
  2. LISINOPRIL AND HYDROCHLOROTHIAZIDE [Suspect]
     Active Substance: HYDROCHLOROTHIAZIDE\LISINOPRIL
     Indication: HYPERTENSION
     Dosage: 12.5 MG/20 MG
     Route: 048
  3. GLIBENCLAMIDE/METFORMIN HYDROCHLORIDE [Concomitant]
     Indication: DIABETES MELLITUS
     Dosage: 2.5 MG/400 MG
     Route: 065
  4. LEVOTHYROXINE. [Concomitant]
     Active Substance: LEVOTHYROXINE
     Indication: HYPOTHYROIDISM
     Route: 065
  5. VILDAGLIPTIN [Concomitant]
     Active Substance: VILDAGLIPTIN
     Indication: DIABETES MELLITUS
     Route: 065

REACTIONS (1)
  - Pemphigoid [Recovering/Resolving]
